FAERS Safety Report 19712955 (Version 1)
Quarter: 2021Q3

REPORT INFORMATION
  Report Type: Spontaneous
  Country: US (occurrence: US)
  Receive Date: 20210817
  Receipt Date: 20210817
  Transmission Date: 20211014
  Serious: Yes (Hospitalization)
  Sender: FDA-Public Use
  Company Number: None

PATIENT
  Age: 69 Year
  Sex: Female
  Weight: 86.7 kg

DRUGS (2)
  1. DEXAMETHASONE 6MG DAILY [Concomitant]
     Dates: start: 20210805
  2. BARICITINIB. [Suspect]
     Active Substance: BARICITINIB
     Indication: COVID-19 PNEUMONIA
     Route: 048
     Dates: start: 20210809

REACTIONS (5)
  - Enterobacter infection [None]
  - Sputum culture positive [None]
  - Acute respiratory failure [None]
  - Flavobacterium infection [None]
  - Opportunistic infection [None]

NARRATIVE: CASE EVENT DATE: 20210811
